FAERS Safety Report 9122009 (Version 1)
Quarter: 2012Q4

REPORT INFORMATION
  Report Type: Spontaneous
  Country: US (occurrence: None)
  Receive Date: 20121026
  Receipt Date: 20121026
  Transmission Date: 20130627
  Serious: No
  Sender: FDA-Public Use
  Company Number: 2012US-004389

PATIENT
  Age: 76 Year
  Sex: Female

DRUGS (2)
  1. OMONTYS (PEGINESATIDE) SOLUTION FOR INJECTION [Suspect]
     Route: 042
     Dates: start: 20120914, end: 20120914
  2. ZEMPLAR (PARICALCITOL) [Concomitant]

REACTIONS (5)
  - Hypersensitivity [None]
  - Nervousness [None]
  - Paraesthesia [None]
  - Headache [None]
  - Nausea [None]
